FAERS Safety Report 20475276 (Version 28)
Quarter: 2022Q4

REPORT INFORMATION
  Report Type: Report from Study
  Country: ES (occurrence: None)
  Receive Date: 20220215
  Receipt Date: 20221216
  Transmission Date: 20230112
  Serious: Yes (Death, Hospitalization)
  Sender: FDA-Public Use
  Company Number: ES-Eisai Medical Research-EC-2022-108713

PATIENT
  Age: 56 Year
  Sex: Male
  Weight: 87.3 kg

DRUGS (21)
  1. LENVATINIB [Suspect]
     Active Substance: LENVATINIB
     Indication: Hepatocellular carcinoma
     Route: 048
     Dates: start: 20210928, end: 20220202
  2. PEMBROLIZUMAB [Suspect]
     Active Substance: PEMBROLIZUMAB
     Indication: Hepatocellular carcinoma
     Route: 041
     Dates: start: 20210928, end: 20220113
  3. LEVEMIR [Concomitant]
     Active Substance: INSULIN DETEMIR
     Route: 058
     Dates: start: 200209
  4. ATARAX [Concomitant]
     Active Substance: HYDROXYZINE HYDROCHLORIDE
     Dates: start: 200507
  5. METFORMIN HYDROCHLORIDE\SITAGLIPTIN PHOSPHATE [Concomitant]
     Active Substance: METFORMIN HYDROCHLORIDE\SITAGLIPTIN PHOSPHATE
     Dates: start: 200609
  6. INSULIN ASPART [Concomitant]
     Active Substance: INSULIN ASPART
     Route: 030
     Dates: start: 200609
  7. URSOBILANE [Concomitant]
     Dates: start: 201509
  8. DIPYRONE [Concomitant]
     Active Substance: DIPYRONE
     Dates: start: 202009
  9. ACETAMINOPHEN [Concomitant]
     Active Substance: ACETAMINOPHEN
     Dates: start: 202009
  10. LORAZEPAM [Concomitant]
     Active Substance: LORAZEPAM
     Dates: start: 202009
  11. HYDROCHLOROTHIAZIDE\LOSARTAN POTASSIUM [Concomitant]
     Active Substance: HYDROCHLOROTHIAZIDE\LOSARTAN POTASSIUM
     Dates: start: 202102
  12. BILASTINE [Concomitant]
     Active Substance: BILASTINE
     Dates: start: 202104
  13. SPIRIVA [Concomitant]
     Active Substance: TIOTROPIUM BROMIDE MONOHYDRATE
     Dates: start: 202107
  14. NALOXONE HYDROCHLORIDE\OXYCODONE HYDROCHLORIDE [Concomitant]
     Active Substance: NALOXONE HYDROCHLORIDE\OXYCODONE HYDROCHLORIDE
     Dates: start: 202108
  15. ZOLPIDEM TARTRATE [Concomitant]
     Active Substance: ZOLPIDEM TARTRATE
     Dates: start: 202108
  16. PREGABALIN [Concomitant]
     Active Substance: PREGABALIN
     Dates: start: 20210902
  17. FERROUS SULFATE [Concomitant]
     Active Substance: FERROUS SULFATE
     Dates: start: 202109
  18. CARVEDILOL [Concomitant]
     Active Substance: CARVEDILOL
     Dates: start: 20211220
  19. OMEPRAZOLE [Concomitant]
     Active Substance: OMEPRAZOLE
     Dates: start: 200609
  20. AMLODIPINE [Concomitant]
     Active Substance: AMLODIPINE BESYLATE
     Dates: start: 201309
  21. ABSTRAL [Concomitant]
     Active Substance: FENTANYL CITRATE
     Dates: start: 202108

REACTIONS (3)
  - Hepatic encephalopathy [Recovered/Resolved]
  - Malignant neoplasm progression [Fatal]
  - Hypoglycaemia [Recovered/Resolved]

NARRATIVE: CASE EVENT DATE: 20220130
